FAERS Safety Report 7471376-6 (Version None)
Quarter: 2011Q2

REPORT INFORMATION
  Report Type: 
  Country: None (occurrence: None)
  Receive Date: 20110510
  Receipt Date: 20110428
  Transmission Date: 20111010
  Serious: Yes (Other)
  Sender: FDA-Public Use
  Company Number: FR-ELI_LILLY_AND_COMPANY-FR201104007984

PATIENT
  Age: 33 Year
  Sex: Male

DRUGS (2)
  1. ZYPREXA [Suspect]
     Dosage: 10 MG, QD
     Route: 048
     Dates: start: 20070101
  2. ZYPREXA [Suspect]
     Dosage: 7.5 MG, BID

REACTIONS (5)
  - HALLUCINATION, AUDITORY [None]
  - HYPERHIDROSIS [None]
  - SOMNOLENCE [None]
  - FATIGUE [None]
  - GLAUCOMA [None]
